FAERS Safety Report 5294611-1 (Version None)
Quarter: 2007Q2

REPORT INFORMATION
  Report Type: 
  Country: None (occurrence: None)
  Receive Date: 20070412
  Receipt Date: 20070410
  Transmission Date: 20071010
  Serious: Yes (Hospitalization)
  Sender: FDA-Public Use
  Company Number: US-GLAXOSMITHKLINE-A0646703A

PATIENT
  Age: 46 Year
  Sex: Female
  Weight: 96.2 kg

DRUGS (2)
  1. LAPATINIB [Suspect]
     Dosage: 1250MG PER DAY
     Route: 048
     Dates: start: 20070317
  2. CAPECITABINE [Suspect]
     Dosage: 2000MG TWICE PER DAY
     Route: 048
     Dates: start: 20070317

REACTIONS (3)
  - DEHYDRATION [None]
  - DIARRHOEA [None]
  - PYREXIA [None]
